FAERS Safety Report 24982362 (Version 1)
Quarter: 2025Q1

REPORT INFORMATION
  Report Type: Spontaneous
  Country: FR (occurrence: FR)
  Receive Date: 20250218
  Receipt Date: 20250218
  Transmission Date: 20250408
  Serious: Yes (Other)
  Sender: MYLAN
  Company Number: None

PATIENT
  Age: 1 Day
  Sex: Female
  Weight: 3.1 kg

DRUGS (1)
  1. EFFEXOR [Suspect]
     Active Substance: VENLAFAXINE HYDROCHLORIDE
     Indication: Mixed anxiety and depressive disorder
     Dosage: 225 MILLIGRAM, QD
     Route: 064
     Dates: end: 20240801

REACTIONS (4)
  - Foetal heart rate disorder [Recovered/Resolved]
  - Term birth [Recovered/Resolved]
  - Normal newborn [Recovered/Resolved]
  - Foetal exposure during pregnancy [Recovered/Resolved]

NARRATIVE: CASE EVENT DATE: 20240801
